FAERS Safety Report 23193782 (Version 1)
Quarter: 2023Q4

REPORT INFORMATION
  Report Type: Report from Study
  Country: GR (occurrence: GR)
  Receive Date: 20231116
  Receipt Date: 20231116
  Transmission Date: 20240110
  Serious: Yes (Life-Threatening, Other)
  Sender: FDA-Public Use
  Company Number: GR-BRISTOL-MYERS SQUIBB COMPANY-2023-163930

PATIENT
  Age: 73 Year
  Sex: Female
  Weight: 59.0 kg

DRUGS (20)
  1. POMALIDOMIDE [Suspect]
     Active Substance: POMALIDOMIDE
     Indication: Plasma cell myeloma
     Route: 048
     Dates: start: 20230824, end: 20230909
  2. DEXAMETHASONE [Suspect]
     Active Substance: DEXAMETHASONE
     Indication: Plasma cell myeloma
     Route: 048
     Dates: start: 20230824
  3. DEXAMETHASONE [Suspect]
     Active Substance: DEXAMETHASONE
     Route: 048
     Dates: start: 20231101
  4. ISATUXIMAB [Suspect]
     Active Substance: ISATUXIMAB
     Indication: Plasma cell myeloma
     Route: 058
     Dates: start: 20230824, end: 20230824
  5. ISATUXIMAB [Suspect]
     Active Substance: ISATUXIMAB
     Route: 058
     Dates: start: 20231025, end: 20231025
  6. ACETAMINOPHEN\CODEINE PHOSPHATE [Concomitant]
     Active Substance: ACETAMINOPHEN\CODEINE PHOSPHATE
     Indication: Product used for unknown indication
     Dates: start: 20230801
  7. ALLOPURINOL [Concomitant]
     Active Substance: ALLOPURINOL
     Indication: Product used for unknown indication
     Dates: start: 202005
  8. SOLUMAG [Concomitant]
     Indication: Product used for unknown indication
     Dates: start: 20200622
  9. LINAGLIPTIN [Concomitant]
     Active Substance: LINAGLIPTIN
     Indication: Product used for unknown indication
     Dates: start: 20211214
  10. LANTUS [Concomitant]
     Active Substance: INSULIN GLARGINE
     Indication: Product used for unknown indication
     Dates: start: 20211214
  11. APIDRA [Concomitant]
     Active Substance: INSULIN GLULISINE
     Indication: Product used for unknown indication
     Dates: start: 20211214
  12. ENLIFT [Concomitant]
     Indication: Product used for unknown indication
     Dates: start: 20200424
  13. ENLIFT [Concomitant]
  14. ASPIRIN [Concomitant]
     Active Substance: ASPIRIN
     Indication: Product used for unknown indication
     Dates: start: 20230824
  15. LOSEC [Concomitant]
     Active Substance: OMEPRAZOLE
     Indication: Product used for unknown indication
     Dates: start: 20200326
  16. LERCANIDIPINE HYDROCHLORIDE [Concomitant]
     Active Substance: LERCANIDIPINE HYDROCHLORIDE
     Indication: Product used for unknown indication
     Dates: start: 202307
  17. INDERAL [Concomitant]
     Active Substance: PROPRANOLOL HYDROCHLORIDE
     Indication: Product used for unknown indication
     Dates: start: 2005
  18. LASIX [Concomitant]
     Active Substance: FUROSEMIDE
     Indication: Product used for unknown indication
     Dates: start: 20200622
  19. LYRICA [Concomitant]
     Active Substance: PREGABALIN
     Indication: Product used for unknown indication
     Dates: start: 20200622
  20. ZOVIRAX [Concomitant]
     Active Substance: ACYCLOVIR
     Indication: Product used for unknown indication
     Dates: start: 20200622

REACTIONS (1)
  - Febrile neutropenia [Not Recovered/Not Resolved]

NARRATIVE: CASE EVENT DATE: 20231104
